FAERS Safety Report 8112641-9 (Version None)
Quarter: 2012Q1

REPORT INFORMATION
  Report Type: 
  Country: None (occurrence: None)
  Receive Date: 20120203
  Receipt Date: 20120127
  Transmission Date: 20120608
  Serious: Yes (Death)
  Sender: FDA-Public Use
  Company Number: CA-ROCHE-772676

PATIENT
  Sex: Female

DRUGS (4)
  1. XELODA [Suspect]
     Indication: BREAST CANCER
     Dosage: THERAPY START DATE REPORTED AS 2011
     Route: 048
  2. CRESTOR [Concomitant]
  3. ASPIRIN [Concomitant]
  4. DIGOXIN [Concomitant]

REACTIONS (1)
  - DISEASE PROGRESSION [None]
